FAERS Safety Report 12113193 (Version 2)
Quarter: 2016Q2

REPORT INFORMATION
  Report Type: Spontaneous
  Country: US (occurrence: US)
  Receive Date: 20160225
  Receipt Date: 20160425
  Transmission Date: 20160815
  Serious: Yes (Hospitalization)
  Sender: FDA-Public Use
  Company Number: US-ROCHE-1714927

PATIENT
  Age: 81 Year
  Sex: Male
  Weight: 80.5 kg

DRUGS (2)
  1. LUCENTIS [Suspect]
     Active Substance: RANIBIZUMAB
     Indication: NEOVASCULAR AGE-RELATED MACULAR DEGENERATION
     Route: 050
  2. CARBIDOPA. [Concomitant]
     Active Substance: CARBIDOPA

REACTIONS (4)
  - Macular degeneration [Unknown]
  - Hypercholesterolaemia [Recovered/Resolved]
  - Pancreatitis acute [Recovered/Resolved]
  - Hypertension [Recovered/Resolved]

NARRATIVE: CASE EVENT DATE: 20160125
